FAERS Safety Report 23224016 (Version 1)
Quarter: 2023Q4

REPORT INFORMATION
  Report Type: Spontaneous
  Country: US (occurrence: US)
  Receive Date: 20231124
  Receipt Date: 20231124
  Transmission Date: 20240110
  Serious: No
  Sender: FDA-Public Use
  Company Number: US-002147023-NVSC2023US249816

PATIENT
  Sex: Female

DRUGS (2)
  1. PATANASE [Suspect]
     Active Substance: OLOPATADINE HYDROCHLORIDE
     Indication: Product used for unknown indication
     Dosage: 665 MG, BID (DAILY BASIS, 2 SPRAY A DAY, FOR ABOUT 15 TO 20 YEARS)
     Route: 065
  2. OLOPATADINE HYDROCHLORIDE [Suspect]
     Active Substance: OLOPATADINE HYDROCHLORIDE
     Indication: Product used for unknown indication
     Dosage: UNK
     Route: 065

REACTIONS (3)
  - Thermal burn [Unknown]
  - Product availability issue [Unknown]
  - Drug ineffective [Unknown]
